FAERS Safety Report 4518936-X (Version None)
Quarter: 2004Q4

REPORT INFORMATION
  Report Type: 
  Country: None (occurrence: None)
  Receive Date: 20041201
  Receipt Date: 20041116
  Transmission Date: 20050328
  Serious: Yes (Other)
  Sender: FDA-Public Use
  Company Number: EM2004-0597

PATIENT
  Age: 11 Year
  Sex: Male
  Weight: 31.4 kg

DRUGS (11)
  1. TOBI [Suspect]
     Indication: PSEUDOMONAS INFECTION
     Dosage: 150 MG, INHALATION
     Route: 055
     Dates: start: 20031001, end: 20040701
  2. SULTANOL (SALBUTAMOL) [Concomitant]
  3. OXIS (FORMOTEROL) [Concomitant]
  4. SINGULAIR [Concomitant]
  5. ACETYLCYSTEINE [Concomitant]
  6. LORAFEM (LORACARBEF) [Concomitant]
  7. VIGANTOLETTEN (COLECALCIFEROL) [Concomitant]
  8. EVIT (TOCOPHERYL ACETATE) [Concomitant]
  9. VITAMIN A [Concomitant]
  10. KREON (PANCREATIN) [Concomitant]
  11. CIPROFLOXACIN [Concomitant]

REACTIONS (3)
  - BLOOD IMMUNOGLOBULIN E INCREASED [None]
  - BRONCHOSPASM [None]
  - OBSTRUCTIVE AIRWAYS DISORDER [None]
